FAERS Safety Report 9560010 (Version 2)
Quarter: 2013Q4

REPORT INFORMATION
  Report Type: Spontaneous
  Country: GB (occurrence: None)
  Receive Date: 20130924
  Receipt Date: 20131107
  Transmission Date: 20140711
  Serious: Yes (Other)
  Sender: FDA-Public Use
  Company Number: AUR-APL-2013-07680

PATIENT
  Age: 44 Year
  Sex: Female
  Weight: 80.5 kg

DRUGS (2)
  1. SERTRALINE [Suspect]
     Indication: ANXIETY
     Route: 048
     Dates: start: 20130301, end: 20130426
  2. SERTRALINE [Suspect]
     Indication: STRESS
     Route: 048
     Dates: start: 20130301, end: 20130426

REACTIONS (2)
  - Tinnitus [None]
  - Deafness [None]
